FAERS Safety Report 9036483 (Version 1)
Quarter: 2013Q1

REPORT INFORMATION
  Report Type: Spontaneous
  Country: US (occurrence: None)
  Receive Date: 20130122
  Receipt Date: 20130122
  Transmission Date: 20140127
  Serious: No
  Sender: FDA-Public Use
  Company Number: None

PATIENT
  Age: 67 Year
  Sex: Female
  Weight: 72.58 kg

DRUGS (1)
  1. ZOLPIDEM ER 6.25 [Suspect]
     Indication: INSOMNIA
     Dosage: I DOSE AT BEDTIME ORAL
     Route: 048
     Dates: start: 20121217, end: 20130111

REACTIONS (7)
  - Headache [None]
  - Paraesthesia [None]
  - Fluid retention [None]
  - Constipation [None]
  - Product size issue [None]
  - Feeling abnormal [None]
  - Somnolence [None]
